FAERS Safety Report 5193865-X (Version None)
Quarter: 2006Q4

REPORT INFORMATION
  Report Type: 
  Country: None (occurrence: None)
  Receive Date: 20061228
  Receipt Date: 20061219
  Transmission Date: 20070319
  Serious: Yes (Hospitalization)
  Sender: FDA-Public Use
  Company Number: JP-AVENTIS-200613943JP

PATIENT
  Age: 34 Year
  Sex: Male

DRUGS (2)
  1. ALLEGRA [Suspect]
  2. OURENGEDOKUTOU [Concomitant]

REACTIONS (3)
  - JAUNDICE [None]
  - LIVER DISORDER [None]
  - RASH [None]
